FAERS Safety Report 24527733 (Version 2)
Quarter: 2024Q4

REPORT INFORMATION
  Report Type: Spontaneous
  Country: US (occurrence: US)
  Receive Date: 20241021
  Receipt Date: 20241021
  Transmission Date: 20250115
  Serious: Yes (Other)
  Sender: ROCHE
  Company Number: US-ROCHE-10000103167

PATIENT
  Age: 68 Year
  Sex: Male
  Weight: 77.11 kg

DRUGS (1)
  1. POLIVY [Suspect]
     Active Substance: POLATUZUMAB VEDOTIN-PIIQ
     Indication: Product used for unknown indication
     Route: 065
     Dates: start: 20240927, end: 20240927

REACTIONS (2)
  - Respiratory failure [Not Recovered/Not Resolved]
  - Pneumonitis [Not Recovered/Not Resolved]
